FAERS Safety Report 7134550-4 (Version None)
Quarter: 2010Q4

REPORT INFORMATION
  Report Type: 
  Country: None (occurrence: None)
  Receive Date: 20101203
  Receipt Date: 20101124
  Transmission Date: 20110411
  Serious: Yes (Hospitalization)
  Sender: FDA-Public Use
  Company Number: MX-ASTRAZENECA-2010SE56128

PATIENT
  Age: 80 Year
  Sex: Male
  Weight: 80 kg

DRUGS (2)
  1. CRESTOR [Suspect]
     Indication: CAROTID ARTERY DISEASE
     Route: 048
     Dates: start: 20080101, end: 20080101
  2. ZYLOPRIM [Concomitant]
     Indication: HYPERURICAEMIA
     Route: 048
     Dates: start: 20080101

REACTIONS (1)
  - DERMATITIS BULLOUS [None]
